FAERS Safety Report 20992742 (Version 1)
Quarter: 2022Q2

REPORT INFORMATION
  Report Type: Spontaneous
  Country: US (occurrence: None)
  Receive Date: 20220621
  Receipt Date: 20220621
  Transmission Date: 20220721
  Serious: Yes (Other)
  Sender: FDA-Public Use
  Company Number: None

PATIENT
  Age: 26 Year
  Sex: Male
  Weight: 94.5 kg

DRUGS (1)
  1. LEVOFLOXACIN [Suspect]
     Active Substance: LEVOFLOXACIN
     Indication: Epididymitis
     Dosage: FREQUENCY : DAILY;?
     Route: 048
     Dates: start: 20220617, end: 20220617

REACTIONS (9)
  - Nausea [None]
  - Dyspepsia [None]
  - Influenza like illness [None]
  - Paraesthesia [None]
  - Pain [None]
  - Pain in extremity [None]
  - Paraesthesia [None]
  - Hypoaesthesia [None]
  - Muscular weakness [None]

NARRATIVE: CASE EVENT DATE: 20220617
